FAERS Safety Report 9210411 (Version 2)
Quarter: 2013Q2

REPORT INFORMATION
  Report Type: Spontaneous
  Country: JP (occurrence: JP)
  Receive Date: 20130404
  Receipt Date: 20130411
  Transmission Date: 20140414
  Serious: Yes (Other)
  Sender: FDA-Public Use
  Company Number: JP-PFIZER INC-2013103491

PATIENT
  Age: 72 Year
  Sex: Female

DRUGS (4)
  1. ZITHROMAC [Suspect]
     Indication: NASOPHARYNGITIS
     Dosage: 500 MG, 1X/DAY
     Route: 048
     Dates: start: 20121221, end: 20121221
  2. MYSLEE [Suspect]
     Indication: SLEEP DISORDER
     Dosage: UNK
     Route: 048
  3. ONON [Concomitant]
     Dosage: UNK
  4. FLAVERIC [Concomitant]
     Dosage: UNK

REACTIONS (1)
  - Loss of consciousness [Recovered/Resolved]
